FAERS Safety Report 6733493-5 (Version None)
Quarter: 2010Q2

REPORT INFORMATION
  Report Type: 
  Country: None (occurrence: None)
  Receive Date: 20100520
  Receipt Date: 20100507
  Transmission Date: 20101027
  Serious: Yes (Other)
  Sender: FDA-Public Use
  Company Number: PHHY2010US31021

PATIENT
  Age: 83 Year
  Sex: Female
  Weight: 159 kg

DRUGS (5)
  1. RECLAST [Suspect]
     Indication: OSTEOPOROSIS
     Dosage: 5 MG
     Route: 042
     Dates: start: 20100427
  2. LOPRESSOR [Concomitant]
  3. BENICAR [Concomitant]
  4. NYSTATIN [Concomitant]
     Dosage: UNK
  5. MULTI-VITAMINS [Concomitant]

REACTIONS (4)
  - BLOOD CREATININE INCREASED [None]
  - BLOOD UREA INCREASED [None]
  - GLOMERULAR FILTRATION RATE DECREASED [None]
  - MALAISE [None]
